APPROVED DRUG PRODUCT: MYCOPHENOLATE MOFETIL
Active Ingredient: MYCOPHENOLATE MOFETIL
Strength: 200MG/ML
Dosage Form/Route: FOR SUSPENSION;ORAL
Application: A211272 | Product #001
Applicant: TEVA PHARMACEUTICALS USA INC
Approved: Jan 25, 2022 | RLD: No | RS: No | Type: DISCN